FAERS Safety Report 23037449 (Version 1)
Quarter: 2023Q4

REPORT INFORMATION
  Report Type: Spontaneous
  Country: US (occurrence: US)
  Receive Date: 20231006
  Receipt Date: 20231006
  Transmission Date: 20240110
  Serious: No
  Sender: FDA-Public Use
  Company Number: US-002147023-NVSC2023US211191

PATIENT
  Sex: Female

DRUGS (1)
  1. TYKERB [Suspect]
     Active Substance: LAPATINIB DITOSYLATE
     Indication: Breast cancer female
     Dosage: 1250 MG, QD
     Route: 048
     Dates: start: 202308

REACTIONS (3)
  - Decreased appetite [Unknown]
  - Pruritus [Unknown]
  - Fatigue [Unknown]
